FAERS Safety Report 6967802-9 (Version None)
Quarter: 2010Q3

REPORT INFORMATION
  Report Type: 
  Country: None (occurrence: None)
  Receive Date: 20100907
  Receipt Date: 20100830
  Transmission Date: 20110219
  Serious: Yes (Disabling, Other)
  Sender: FDA-Public Use
  Company Number: CA-BAYER-201028556NA

PATIENT
  Age: 61 Year
  Sex: Female
  Weight: 91 kg

DRUGS (3)
  1. AVELOX [Suspect]
     Indication: PNEUMONIA
     Dosage: TOTAL DAILY DOSE: 400 MG  UNIT DOSE: 400 MG
     Route: 048
     Dates: start: 20090221, end: 20090301
  2. FLOVENT HFA [Concomitant]
     Dosage: TOTAL DAILY DOSE: 500 ?G  UNIT DOSE: 125 ?G
     Route: 055
     Dates: start: 20090201
  3. SALBUTAMOL HFA [Concomitant]
     Dosage: AS USED: 200 ?G  UNIT DOSE: 100 ?G
     Route: 055

REACTIONS (4)
  - ACTIVITIES OF DAILY LIVING IMPAIRED [None]
  - HYPERHIDROSIS [None]
  - HYPERSOMNIA [None]
  - NIGHT SWEATS [None]
